FAERS Safety Report 4479107-9 (Version None)
Quarter: 2004Q3

REPORT INFORMATION
  Report Type: 
  Country: None (occurrence: None)
  Receive Date: 20040923
  Receipt Date: 20040730
  Transmission Date: 20050211
  Serious: Yes (Hospitalization)
  Sender: FDA-Public Use
  Company Number: 208154

PATIENT
  Age: 58 Year
  Sex: Female
  Weight: 96.1 kg

DRUGS (1)
  1. AVASTIN [Suspect]
     Indication: COLON CANCER METASTATIC
     Dosage: 495 MG, Q2W, INTRAVENOUS
     Route: 042

REACTIONS (1)
  - DEEP VEIN THROMBOSIS [None]
